APPROVED DRUG PRODUCT: MOTEGRITY
Active Ingredient: PRUCALOPRIDE SUCCINATE
Strength: EQ 2MG BASE
Dosage Form/Route: TABLET;ORAL
Application: N210166 | Product #002 | TE Code: AB
Applicant: TAKEDA PHARMACEUTICALS USA INC
Approved: Dec 14, 2018 | RLD: Yes | RS: Yes | Type: RX

EXCLUSIVITY:
Code: M-14 | Date: Jul 10, 2028